FAERS Safety Report 8202846-0 (Version None)
Quarter: 2012Q1

REPORT INFORMATION
  Report Type: 
  Country: None (occurrence: None)
  Receive Date: 20120312
  Receipt Date: 20120312
  Transmission Date: 20120608
  Serious: Yes (Other)
  Sender: FDA-Public Use
  Company Number: None

PATIENT
  Sex: Female
  Weight: 37.2 kg

DRUGS (2)
  1. NUTROPIN [Concomitant]
     Indication: TURNER'S SYNDROME
     Dosage: 1.3 MG
     Route: 058
  2. GENOTROPIN [Suspect]
     Indication: TURNER'S SYNDROME
     Dosage: 1.4 MG
     Route: 058

REACTIONS (1)
  - MALIGNANT MELANOMA [None]
